FAERS Safety Report 9705987 (Version 1)
Quarter: 2013Q4

REPORT INFORMATION
  Report Type: Spontaneous
  Country: FR (occurrence: FR)
  Receive Date: 20131122
  Receipt Date: 20131122
  Transmission Date: 20140711
  Serious: Yes (Death)
  Sender: FDA-Public Use
  Company Number: FR-B.I. PHARMACEUTICALS,INC./RIDGEFIELD-2013-FF-02739FF

PATIENT
  Age: 91 Year
  Sex: Male

DRUGS (4)
  1. PRADAXA [Suspect]
     Indication: ATRIAL FIBRILLATION
     Dosage: 220 MG
     Route: 048
     Dates: start: 201302, end: 201310
  2. TADENAN [Concomitant]
     Route: 048
  3. MOVICOL [Concomitant]
     Route: 048
  4. UVEDOSE [Concomitant]
     Route: 048

REACTIONS (1)
  - Death [Fatal]
